FAERS Safety Report 15928967 (Version 4)
Quarter: 2019Q3

REPORT INFORMATION
  Report Type: Spontaneous
  Country: US (occurrence: US)
  Receive Date: 20190206
  Receipt Date: 20190730
  Transmission Date: 20191004
  Serious: Yes (Death, Other)
  Sender: FDA-Public Use
  Company Number: US-ASTRAZENECA-2018SF26368

PATIENT
  Age: 16396 Day
  Sex: Female
  Weight: 110.2 kg

DRUGS (10)
  1. OMEPRAZOLE. [Suspect]
     Active Substance: OMEPRAZOLE
     Indication: GASTROOESOPHAGEAL REFLUX DISEASE
     Route: 065
     Dates: start: 20081118, end: 20090217
  2. CRESTOR [Concomitant]
     Active Substance: ROSUVASTATIN CALCIUM
  3. NEXIUM [Suspect]
     Active Substance: ESOMEPRAZOLE MAGNESIUM
     Indication: GASTROOESOPHAGEAL REFLUX DISEASE
     Route: 048
     Dates: start: 20040101, end: 20080624
  4. CITALOPRAM [Concomitant]
     Active Substance: CITALOPRAM HYDROBROMIDE
  5. CLONIDINE. [Concomitant]
     Active Substance: CLONIDINE
  6. OMEPRAZOLE. [Concomitant]
     Active Substance: OMEPRAZOLE
  7. NEXIUM [Suspect]
     Active Substance: ESOMEPRAZOLE MAGNESIUM
     Indication: GASTROOESOPHAGEAL REFLUX DISEASE
     Route: 048
     Dates: start: 200401, end: 200812
  8. ZOLPIDEM [Concomitant]
     Active Substance: ZOLPIDEM TARTRATE
  9. ASPIRIN. [Concomitant]
     Active Substance: ASPIRIN
  10. COREG [Concomitant]
     Active Substance: CARVEDILOL

REACTIONS (5)
  - Chronic kidney disease [Not Recovered/Not Resolved]
  - Death [Fatal]
  - Renal failure [Unknown]
  - End stage renal disease [Not Recovered/Not Resolved]
  - Renal injury [Unknown]

NARRATIVE: CASE EVENT DATE: 20081118
